FAERS Safety Report 25013151 (Version 1)
Quarter: 2025Q1

REPORT INFORMATION
  Report Type: Spontaneous
  Country: US (occurrence: None)
  Receive Date: 20250226
  Receipt Date: 20250226
  Transmission Date: 20250409
  Serious: No
  Sender: AXSOME THERAPEUTICS, INC.
  Company Number: US-Axsome Therapeutics, Inc.-AXS202412-002157

PATIENT
  Age: 76 Year
  Sex: Female

DRUGS (3)
  1. AUVELITY [Suspect]
     Active Substance: BUPROPION HYDROCHLORIDE\DEXTROMETHORPHAN HYDROBROMIDE
     Indication: Major depression
     Dosage: 45-105 MG
     Route: 048
  2. VIIBRYD [Concomitant]
     Active Substance: VILAZODONE HYDROCHLORIDE
     Indication: Product used for unknown indication
     Route: 065
  3. MIRTAZAPINE [Concomitant]
     Active Substance: MIRTAZAPINE
     Route: 065

REACTIONS (12)
  - Discomfort [Unknown]
  - Asthenia [Unknown]
  - Psychiatric symptom [Unknown]
  - Emotional poverty [Unknown]
  - Fear [Unknown]
  - Gastrointestinal motility disorder [Unknown]
  - Insomnia [Unknown]
  - Nervousness [Unknown]
  - Drug ineffective [Unknown]
  - Depressed mood [Unknown]
  - Drug dose titration not performed [Unknown]
  - Inappropriate schedule of product administration [Unknown]
